FAERS Safety Report 8621594-6 (Version None)
Quarter: 2012Q3

REPORT INFORMATION
  Report Type: 
  Country: None (occurrence: None)
  Receive Date: 20120820
  Receipt Date: 20120820
  Transmission Date: 20120928
  Serious: Yes (Life-Threatening, Hospitalization)
  Sender: FDA-Public Use
  Company Number: None

PATIENT
  Age: 57 Year
  Sex: Female
  Weight: 58.9676 kg

DRUGS (4)
  1. HYDROCHLOROTHIAZIDE [Suspect]
     Indication: HYPERTENSION
     Dosage: 1 QD PO
     Route: 048
  2. CELEBREX [Concomitant]
  3. CELEBREX [Suspect]
     Indication: BONE PAIN
     Dosage: 1 BID PO
     Route: 048
     Dates: start: 20120802, end: 20120809
  4. CELEBREX [Suspect]
     Indication: FRACTURE
     Dosage: 1 BID PO
     Route: 048
     Dates: start: 20120802, end: 20120809

REACTIONS (6)
  - HYPOTENSION [None]
  - RENAL FAILURE ACUTE [None]
  - OEDEMA [None]
  - NEPHROLITHIASIS [None]
  - HYPOKALAEMIA [None]
  - RENAL CYST [None]
